FAERS Safety Report 7459539-7 (Version None)
Quarter: 2011Q2

REPORT INFORMATION
  Report Type: 
  Country: None (occurrence: None)
  Receive Date: 20110426
  Receipt Date: 20110412
  Transmission Date: 20111010
  Serious: Yes (Death)
  Sender: FDA-Public Use
  Company Number: JP-2011-10344

PATIENT
  Age: 74 Year
  Sex: Female
  Weight: 37 kg

DRUGS (4)
  1. SAMSCA [Suspect]
     Indication: OEDEMA PERIPHERAL
     Dosage: 15 MG MILLIGRAM(S), QD, ORAL
     Route: 048
     Dates: start: 20110118, end: 20110123
  2. CETAPRIL (ALACEPRIL) TABLET [Concomitant]
  3. LASIX [Suspect]
     Indication: OEDEMA PERIPHERAL
     Dosage: 40 MG MILLIGRAM(S), QD, ORAL
     Route: 048
     Dates: start: 20101214, end: 20110123
  4. ALDACTONE [Suspect]
     Indication: OEDEMA PERIPHERAL
     Dosage: 25 MG MILLIGRAM(S), QD, ORAL
     Route: 048
     Dates: start: 20101214, end: 20110124

REACTIONS (7)
  - GASTROINTESTINAL HAEMORRHAGE [None]
  - LUNG INFECTION [None]
  - PLEURAL EFFUSION [None]
  - ACTIVITIES OF DAILY LIVING IMPAIRED [None]
  - GENERAL PHYSICAL HEALTH DETERIORATION [None]
  - MELAENA [None]
  - HYPOALBUMINAEMIA [None]
